FAERS Safety Report 19818620 (Version 1)
Quarter: 2021Q3

REPORT INFORMATION
  Report Type: Spontaneous
  Country: US (occurrence: US)
  Receive Date: 20210912
  Receipt Date: 20210912
  Transmission Date: 20211014
  Serious: No
  Sender: FDA-Public Use
  Company Number: US-ASTRAZENECA-2021A695537

PATIENT
  Sex: Female

DRUGS (1)
  1. TAGRISSO [Suspect]
     Active Substance: OSIMERTINIB
     Indication: LUNG NEOPLASM MALIGNANT
     Route: 048

REACTIONS (6)
  - Nausea [Unknown]
  - Taste disorder [Unknown]
  - Appetite disorder [Unknown]
  - Dry mouth [Unknown]
  - Diarrhoea [Recovered/Resolved]
  - Stomatitis [Recovered/Resolved]
